FAERS Safety Report 10347656 (Version 1)
Quarter: 2014Q3

REPORT INFORMATION
  Report Type: Spontaneous
  Country: US (occurrence: US)
  Receive Date: 20140729
  Receipt Date: 20140729
  Transmission Date: 20150326
  Serious: Yes (Other)
  Sender: FDA-Public Use
  Company Number: US-ACTAVIS-2014-16084

PATIENT
  Age: 90 Year
  Sex: Female

DRUGS (3)
  1. CIPROFLOXACIN HYDROCHLORIDE (WATSON LABORATORIES) [Interacting]
     Active Substance: CIPROFLOXACIN HYDROCHLORIDE
     Indication: PSEUDOMONAS INFECTION
     Dosage: 500 MG, BID
     Route: 065
  2. METHOTREXATE (METHOTREXATE SODIUM) [Interacting]
     Active Substance: METHOTREXATE SODIUM
     Dosage: DOSES RANGING FROM 7.5 TO 15 MG WEEKLY
     Route: 065
  3. METHOTREXATE (METHOTREXATE SODIUM) [Suspect]
     Active Substance: METHOTREXATE SODIUM
     Indication: PSORIASIS
     Dosage: 12.5 MG, 1/WEEK
     Route: 065

REACTIONS (8)
  - Blood creatinine increased [Recovered/Resolved]
  - Abdominal discomfort [Recovered/Resolved]
  - Toxicity to various agents [Recovered/Resolved]
  - Liver function test abnormal [Not Recovered/Not Resolved]
  - Drug interaction [Recovered/Resolved]
  - Mouth ulceration [Recovering/Resolving]
  - Skin ulcer [Recovering/Resolving]
  - Platelet count decreased [Recovered/Resolved]
